FAERS Safety Report 17056166 (Version 1)
Quarter: 2019Q4

REPORT INFORMATION
  Report Type: Spontaneous
  Country: FR (occurrence: FR)
  Receive Date: 20191121
  Receipt Date: 20191121
  Transmission Date: 20200122
  Serious: Yes (Hospitalization, Other)
  Sender: FDA-Public Use
  Company Number: FR-MACLEODS PHARMACEUTICALS US LTD-MAC2019023832

PATIENT

DRUGS (5)
  1. METHOTREXATE. [Suspect]
     Active Substance: METHOTREXATE
     Indication: ANTISYNTHETASE SYNDROME
     Dosage: 20 MILLIGRAM, Q.W.
     Route: 065
  2. PREDNISONE. [Suspect]
     Active Substance: PREDNISONE
     Indication: ANTISYNTHETASE SYNDROME
     Dosage: 10 MILLIGRAM, QD
     Route: 065
  3. TRIAMCINOLONE [Suspect]
     Active Substance: TRIAMCINOLONE
     Indication: TENOSYNOVITIS
  4. TOCILIZUMAB. [Suspect]
     Active Substance: TOCILIZUMAB
     Indication: ANTISYNTHETASE SYNDROME
     Dosage: 560 MILLIGRAM, ONCE MONTHLY FOR 1 YEAR
     Route: 065
  5. TRIAMCINOLONE [Suspect]
     Active Substance: TRIAMCINOLONE
     Indication: SYNOVITIS
     Dosage: 2 INTRA-ARTICULAR INJECTIONS OF TRIAMCINOLONE 2 MONTHS AND 3 DAYS BEFORE ADMISSION
     Route: 014

REACTIONS (4)
  - Legionella infection [Recovered/Resolved]
  - Cellulitis [Recovered/Resolved]
  - Arthritis bacterial [Recovered/Resolved]
  - Lymphadenopathy [Recovered/Resolved]
